FAERS Safety Report 11804829 (Version 1)
Quarter: 2015Q4

REPORT INFORMATION
  Report Type: Spontaneous
  Country: US (occurrence: US)
  Receive Date: 20151205
  Receipt Date: 20151205
  Transmission Date: 20160305
  Serious: No
  Sender: FDA-Public Use
  Company Number: US-ASTRAZENECA-2015SF21862

PATIENT
  Age: 77 Year
  Sex: Female
  Weight: 90.7 kg

DRUGS (1)
  1. NEXIUM 24HR [Suspect]
     Active Substance: ESOMEPRAZOLE MAGNESIUM
     Indication: DYSPEPSIA
     Route: 048
     Dates: start: 2015

REACTIONS (3)
  - Product use issue [Unknown]
  - Frequent bowel movements [Not Recovered/Not Resolved]
  - Flatulence [Not Recovered/Not Resolved]
